FAERS Safety Report 7560240-X (Version None)
Quarter: 2011Q2

REPORT INFORMATION
  Report Type: 
  Country: None (occurrence: None)
  Receive Date: 20110621
  Receipt Date: 20110607
  Transmission Date: 20111010
  Serious: Yes (Other)
  Sender: FDA-Public Use
  Company Number: ES-CELGENEUS-144-21880-11060999

PATIENT
  Age: 73 Year
  Sex: Male

DRUGS (4)
  1. ANTICOAGULANT THERAPY [Concomitant]
     Indication: ANTICOAGULANT THERAPY
     Route: 048
  2. REVLIMID [Suspect]
     Indication: MULTIPLE MYELOMA
     Dosage: 10 MILLIGRAM
     Route: 048
  3. LMWH [Concomitant]
     Route: 065
  4. REVLIMID [Suspect]
     Route: 048

REACTIONS (1)
  - BONE MARROW FAILURE [None]
